FAERS Safety Report 6840312-5 (Version None)
Quarter: 2010Q3

REPORT INFORMATION
  Report Type: 
  Country: None (occurrence: None)
  Receive Date: 20100709
  Receipt Date: 20100625
  Transmission Date: 20110219
  Serious: Yes (Hospitalization)
  Sender: FDA-Public Use
  Company Number: AMAG201000277

PATIENT
  Age: 46 Year
  Sex: Female
  Weight: 138.5 kg

DRUGS (12)
  1. FERAHEME [Suspect]
     Indication: IRON DEFICIENCY ANAEMIA
     Dosage: 150 MG, SINGLE, INTRAVENOUS
     Route: 042
     Dates: start: 20100625, end: 20100625
  2. EPOGEN [Concomitant]
  3. ASPIRIN [Concomitant]
  4. GLYBURIDE [Concomitant]
  5. ELAVIL [Concomitant]
  6. HECTOROL [Concomitant]
  7. LOPRESSOR (METOPROLOL TRATRATE) [Concomitant]
  8. NEPHROCAPS (ASCORBIC AACID, BIOTIN, CYANOCOBALAMIN, FOLIC ACID, NICOTI [Concomitant]
  9. PHOSIO (CALCIUM ACETATE) [Concomitant]
  10. SENSIPAR [Concomitant]
  11. ZANTAC 150 [Concomitant]
  12. VICODIN [Concomitant]

REACTIONS (1)
  - DRUG HYPERSENSITIVITY [None]
